FAERS Safety Report 14012063 (Version 3)
Quarter: 2017Q4

REPORT INFORMATION
  Report Type: Report from Study
  Country: CO (occurrence: CO)
  Receive Date: 20170926
  Receipt Date: 20171027
  Transmission Date: 20180321
  Serious: Yes (Life-Threatening, Hospitalization, Other)
  Sender: FDA-Public Use
  Company Number: PHHY2017CO138230

PATIENT
  Sex: Female
  Weight: 50 kg

DRUGS (2)
  1. TYKERB [Suspect]
     Active Substance: LAPATINIB DITOSYLATE
     Indication: BREAST CANCER
     Dosage: 5 DF, QD
     Route: 048
     Dates: start: 20160627, end: 20170824
  2. XELODA [Concomitant]
     Active Substance: CAPECITABINE
     Indication: PRODUCT USED FOR UNKNOWN INDICATION
     Route: 065

REACTIONS (10)
  - Metastases to bone [Unknown]
  - Gait inability [Unknown]
  - Radiation skin injury [Unknown]
  - Aphasia [Unknown]
  - Terminal state [Unknown]
  - Nervous system disorder [Unknown]
  - Movement disorder [Unknown]
  - Disease recurrence [Unknown]
  - Metastases to central nervous system [Unknown]
  - Decreased appetite [Unknown]
